FAERS Safety Report 25361259 (Version 1)
Quarter: 2025Q2

REPORT INFORMATION
  Report Type: Report from Study
  Country: US (occurrence: US)
  Receive Date: 20250527
  Receipt Date: 20250527
  Transmission Date: 20250716
  Serious: Yes (Hospitalization, Other)
  Sender: TAKEDA
  Company Number: US-TAKEDA-2021TUS051717

PATIENT
  Sex: Female
  Weight: 120 kg

DRUGS (39)
  1. HUMAN IMMUNOGLOBULIN G [Suspect]
     Active Substance: HUMAN IMMUNOGLOBULIN G
     Indication: Immunodeficiency common variable
     Dosage: 50 GRAM, Q3WEEKS
     Dates: start: 20200812
  2. HUMAN IMMUNOGLOBULIN G [Suspect]
     Active Substance: HUMAN IMMUNOGLOBULIN G
     Dosage: 50 GRAM, Q3WEEKS
     Dates: start: 20210818
  3. HUMAN IMMUNOGLOBULIN G [Suspect]
     Active Substance: HUMAN IMMUNOGLOBULIN G
     Dosage: 50 GRAM, Q3WEEKS
  4. SYNTHROID [Concomitant]
     Active Substance: LEVOTHYROXINE SODIUM
  5. WELLBUTRIN XL [Concomitant]
     Active Substance: BUPROPION HYDROCHLORIDE
  6. CYCLOBENZAPRINE [Concomitant]
     Active Substance: CYCLOBENZAPRINE
  7. LEFLUNOMIDE [Concomitant]
     Active Substance: LEFLUNOMIDE
  8. CINNAMON [Concomitant]
     Active Substance: CINNAMON
  9. CALCIUM [Concomitant]
     Active Substance: CALCIUM
  10. FISH OIL [Concomitant]
     Active Substance: FISH OIL
  11. HORSE CHESTNUT [Concomitant]
     Active Substance: HORSE CHESTNUT
  12. FLUOXETINE [Concomitant]
     Active Substance: FLUOXETINE HYDROCHLORIDE
  13. HERBALS\TURMERIC [Concomitant]
     Active Substance: HERBALS\TURMERIC
  14. Menopause support [Concomitant]
  15. OMEPRAZOLE [Concomitant]
     Active Substance: OMEPRAZOLE
  16. PRAVASTATIN [Concomitant]
     Active Substance: PRAVASTATIN
  17. HUMIRA [Concomitant]
     Active Substance: ADALIMUMAB
  18. MONTELUKAST [Concomitant]
     Active Substance: MONTELUKAST
  19. LEVOTHYROXINE [Concomitant]
     Active Substance: LEVOTHYROXINE
  20. BIOTIN [Concomitant]
     Active Substance: BIOTIN
  21. TOPAMAX [Concomitant]
     Active Substance: TOPIRAMATE
  22. DIPHENHYDRAMINE HYDROCHLORIDE [Concomitant]
     Active Substance: DIPHENHYDRAMINE HYDROCHLORIDE
  23. METOPROLOL SUCCINATE [Concomitant]
     Active Substance: METOPROLOL SUCCINATE
  24. ENTRESTO [Concomitant]
     Active Substance: SACUBITRIL\VALSARTAN
  25. SODIUM CHLORIDE [Concomitant]
     Active Substance: SODIUM CHLORIDE
  26. EPINEPHRINE [Concomitant]
     Active Substance: EPINEPHRINE
  27. SOLU-MEDROL [Concomitant]
     Active Substance: METHYLPREDNISOLONE SODIUM SUCCINATE
  28. ACETAMINOPHEN [Concomitant]
     Active Substance: ACETAMINOPHEN
  29. BENADRYL ALLERGY [Concomitant]
     Active Substance: DIPHENHYDRAMINE HYDROCHLORIDE
  30. HORSE CHESTNUT [Concomitant]
     Active Substance: HORSE CHESTNUT
  31. CALCIUM\CHOLECALCIFEROL [Concomitant]
     Active Substance: CALCIUM\CHOLECALCIFEROL
  32. CYCLOBENZAPRINE HYDROCHLORIDE [Concomitant]
     Active Substance: CYCLOBENZAPRINE HYDROCHLORIDE
  33. Lmx [Concomitant]
  34. LASIX [Concomitant]
     Active Substance: FUROSEMIDE
  35. FLUOXETINE HYDROCHLORIDE [Concomitant]
     Active Substance: FLUOXETINE HYDROCHLORIDE
  36. PRAVASTATIN SODIUM [Concomitant]
     Active Substance: PRAVASTATIN SODIUM
  37. BREO ELLIPTA [Concomitant]
     Active Substance: FLUTICASONE FUROATE\VILANTEROL TRIFENATATE
  38. Oyster shell cacium with vitamin d [Concomitant]
  39. SODIUM CHLORIDE [Concomitant]
     Active Substance: SODIUM CHLORIDE

REACTIONS (5)
  - Pneumonia [Unknown]
  - Bronchitis [Unknown]
  - Irritable bowel syndrome [Unknown]
  - Inappropriate schedule of product administration [Unknown]
  - Sinusitis [Recovering/Resolving]
